FAERS Safety Report 15204450 (Version 6)
Quarter: 2018Q3

REPORT INFORMATION
  Report Type: Spontaneous
  Country: US (occurrence: US)
  Receive Date: 20180726
  Receipt Date: 20180918
  Transmission Date: 20181010
  Serious: Yes (Life-Threatening, Hospitalization, Other)
  Sender: FDA-Public Use
  Company Number: US-ACTELION-A-NJ2018-176010

PATIENT
  Age: 61 Year
  Sex: Female
  Weight: 56.69 kg

DRUGS (5)
  1. VELETRI [Suspect]
     Active Substance: EPOPROSTENOL
     Indication: PULMONARY ARTERIAL HYPERTENSION
     Dosage: 48 NG/KG, PER MIN
     Route: 042
  2. VELETRI [Suspect]
     Active Substance: EPOPROSTENOL
     Dosage: 44 NG/KG, PER MIN
     Route: 042
  3. ORENITRAM [Concomitant]
     Active Substance: TREPROSTINIL
     Dosage: 7 MG, TID
  4. ORENITRAM [Concomitant]
     Active Substance: TREPROSTINIL
     Dosage: 6.5 MG, UNK
     Route: 048
  5. DILAUDID [Suspect]
     Active Substance: HYDROMORPHONE HYDROCHLORIDE
     Indication: ABDOMINAL PAIN UPPER
     Route: 065

REACTIONS (11)
  - Diarrhoea [Unknown]
  - Complication associated with device [Recovered/Resolved]
  - Device occlusion [Recovered/Resolved]
  - Pain [Unknown]
  - Hypotension [Unknown]
  - Device related infection [Unknown]
  - Pain management [Unknown]
  - Memory impairment [Unknown]
  - Overdose [Unknown]
  - Pancreatitis [Unknown]
  - Disorientation [Unknown]

NARRATIVE: CASE EVENT DATE: 201807
